FAERS Safety Report 8849159 (Version 1)
Quarter: 2012Q4

REPORT INFORMATION
  Report Type: Spontaneous
  Country: US (occurrence: None)
  Receive Date: 20121017
  Receipt Date: 20121017
  Transmission Date: 20130627
  Serious: No
  Sender: FDA-Public Use
  Company Number: None

PATIENT
  Age: 66 Year
  Sex: Female
  Weight: 77.11 kg

DRUGS (6)
  1. KETOROLAC TROMETHAMINE [Suspect]
     Indication: RETINAL EDEMA
     Dosage: one drop 4x per day
     Route: 047
     Dates: start: 20121011, end: 20121015
  2. KETOROLAC TROMETHAMINE [Suspect]
     Indication: PROPHYLAXIS
     Dosage: one drop 4x per day
     Route: 047
     Dates: start: 20121011, end: 20121015
  3. KETOROLAC TROMETHAMINE [Suspect]
     Indication: PREOPERATIVE CARE
     Dosage: one drop 4x per day
     Route: 047
     Dates: start: 20121011, end: 20121015
  4. KETOROLAC TROMETHAMINE [Suspect]
     Indication: POSTOPERATIVE CARE
     Dosage: one drop 4x per day
     Route: 047
     Dates: start: 20121011, end: 20121015
  5. POLYMIXIN B/TRIMETHOPRIM [Concomitant]
  6. PREDNISOLONE ACETATE [Concomitant]

REACTIONS (3)
  - Eye pain [None]
  - Pain [None]
  - Treatment noncompliance [None]
